FAERS Safety Report 17508871 (Version 1)
Quarter: 2020Q1

REPORT INFORMATION
  Report Type: Spontaneous
  Country: US (occurrence: US)
  Receive Date: 20200305
  Receipt Date: 20200305
  Transmission Date: 20200409
  Serious: Yes (Other)
  Sender: FDA-Public Use
  Company Number: None

PATIENT
  Age: 54 Year
  Sex: Female
  Weight: 66.6 kg

DRUGS (1)
  1. EMGALITY [Suspect]
     Active Substance: GALCANEZUMAB-GNLM
     Indication: MIGRAINE
     Dosage: ?          OTHER FREQUENCY:1 INJECTION PER MO;?
     Route: 058

REACTIONS (4)
  - Hypercalcaemia [None]
  - Fatigue [None]
  - Therapeutic response changed [None]
  - Parathyroid hormone-related protein increased [None]

NARRATIVE: CASE EVENT DATE: 20191101
